FAERS Safety Report 5794327-9 (Version None)
Quarter: 2008Q2

REPORT INFORMATION
  Report Type: 
  Country: None (occurrence: None)
  Receive Date: 20080625
  Receipt Date: 20080612
  Transmission Date: 20081010
  Serious: No
  Sender: FDA-Public Use
  Company Number: 234946J08USA

PATIENT
  Age: 62 Year
  Sex: Female
  Weight: 74.8435 kg

DRUGS (7)
  1. REBIF [Suspect]
     Indication: MULTIPLE SCLEROSIS
     Dosage: 44 MCG, 3 IN 1 WEEKS, SUBCUTANEOUS
     Route: 058
     Dates: start: 20080319
  2. ESTROGEN PATCH (HORMONES AND RELATED AGENTS) [Suspect]
     Indication: HORMONE REPLACEMENT THERAPY
     Dates: start: 20080501
  3. TYLENOL (COTYLENOL) [Concomitant]
  4. LEXAPRO [Concomitant]
  5. CLONAZEPAM [Concomitant]
  6. LORAZEPAM [Concomitant]
  7. ESTROGEN PATCH (HORMONES AND RELATED AGENTS) [Concomitant]

REACTIONS (1)
  - HEADACHE [None]
